FAERS Safety Report 6696293-0 (Version None)
Quarter: 2010Q2

REPORT INFORMATION
  Report Type: 
  Country: None (occurrence: None)
  Receive Date: 20100421
  Receipt Date: 20100412
  Transmission Date: 20101027
  Serious: Yes (Hospitalization)
  Sender: FDA-Public Use
  Company Number: 1000010156

PATIENT
  Age: 85 Year
  Sex: Male

DRUGS (7)
  1. ESCITALOPRAM [Suspect]
     Dosage: 15 MG (15 MG, 1 IN 1 D), ORAL
     Route: 048
     Dates: end: 20091012
  2. ESCITALOPRAM [Suspect]
     Dosage: 5 MG (5 MG, 1 IN 1 D), ORAL
     Route: 048
     Dates: start: 20090101, end: 20090101
  3. EXELON [Suspect]
     Dosage: 9.5 MG (9.5 MG, 1 IN 1 D), TRANSDERMAL
     Route: 062
     Dates: end: 20091012
  4. EXELON [Suspect]
     Dosage: 1 DOSAGE FORMS (1 DOSAGE FORMS, 1 IN 1 D), TRANSDERMAL
     Route: 062
     Dates: start: 20090101, end: 20090101
  5. ALDACTAZINE [Concomitant]
  6. GINKOR [Concomitant]
  7. METEOSPASMYL [Concomitant]

REACTIONS (3)
  - AGGRESSION [None]
  - CONVULSION [None]
  - SUICIDAL IDEATION [None]
